FAERS Safety Report 7168010-1 (Version None)
Quarter: 2010Q4

REPORT INFORMATION
  Report Type: 
  Country: None (occurrence: None)
  Receive Date: 20101216
  Receipt Date: 20101208
  Transmission Date: 20110411
  Serious: No
  Sender: FDA-Public Use
  Company Number: US-PFIZER INC-2010167848

PATIENT
  Age: 70 Year

DRUGS (2)
  1. EFFEXOR XR [Suspect]
     Dosage: 300 MG, UNK
  2. EFFEXOR XR [Suspect]
     Dosage: 225 MG, UNK

REACTIONS (1)
  - DIZZINESS [None]
